FAERS Safety Report 16434763 (Version 1)
Quarter: 2019Q2

REPORT INFORMATION
  Report Type: Spontaneous
  Country: US (occurrence: US)
  Receive Date: 20190614
  Receipt Date: 20190614
  Transmission Date: 20190711
  Serious: No
  Sender: FDA-Public Use
  Company Number: US-JNJFOC-20170223952

PATIENT
  Age: 80 Year
  Sex: Male
  Weight: 71.22 kg

DRUGS (4)
  1. FENTANYL. [Suspect]
     Active Substance: FENTANYL
     Indication: ARTHRALGIA
     Route: 062
     Dates: start: 20170213
  2. OXYCONTIN [Concomitant]
     Active Substance: OXYCODONE HYDROCHLORIDE
     Indication: PAIN
     Dosage: DOSE WAS 5/ 325 MG CUT INTO 4 PIECES
     Route: 048
  3. FENTANYL. [Suspect]
     Active Substance: FENTANYL
     Indication: BONE OPERATION
     Route: 062
     Dates: start: 20170213
  4. FENTANYL. [Suspect]
     Active Substance: FENTANYL
     Indication: ARTHRITIS
     Route: 062
     Dates: start: 20170213

REACTIONS (1)
  - Dysgeusia [Not Recovered/Not Resolved]

NARRATIVE: CASE EVENT DATE: 20170213
